FAERS Safety Report 12362134 (Version 8)
Quarter: 2020Q1

REPORT INFORMATION
  Report Type: Report from Study
  Country: US (occurrence: US)
  Receive Date: 20160512
  Receipt Date: 20200306
  Transmission Date: 20200409
  Serious: Yes (Other)
  Sender: FDA-Public Use
  Company Number: US-SA-2016SA089762

PATIENT
  Age: 70 Year
  Sex: Female

DRUGS (15)
  1. HUMULIN R [Concomitant]
     Active Substance: INSULIN HUMAN
     Dosage: 10 IU
  2. INSULIN GLARGINE [Suspect]
     Active Substance: INSULIN GLARGINE
     Dosage: 50 IU, BID
     Route: 058
  3. METFORMIN [Concomitant]
     Active Substance: METFORMIN HYDROCHLORIDE
     Indication: DIABETES MELLITUS
     Dosage: 1 DF, QD
     Route: 065
  4. TOUJEO [Concomitant]
     Active Substance: INSULIN GLARGINE
     Indication: DIABETES MELLITUS
     Dosage: 40 IU, BID
     Route: 065
  5. NOVOLIN R [Concomitant]
     Active Substance: INSULIN HUMAN
     Dosage: UNK
  6. NOVOLOG [Concomitant]
     Active Substance: INSULIN ASPART
     Dosage: UNK
  7. INSULIN GLARGINE [Suspect]
     Active Substance: INSULIN GLARGINE
     Indication: TYPE 1 DIABETES MELLITUS
     Dosage: 100 IU, BID  (AM + PM)
     Route: 058
  8. HUMALOG [Concomitant]
     Active Substance: INSULIN LISPRO
     Dosage: UNK
  9. INSULIN GLARGINE [Suspect]
     Active Substance: INSULIN GLARGINE
     Dosage: 50 IU, BID
     Route: 058
  10. INSULIN GLARGINE [Suspect]
     Active Substance: INSULIN GLARGINE
     Dosage: UNK
  11. INSULIN GLARGINE [Suspect]
     Active Substance: INSULIN GLARGINE
     Dosage: UNK
     Dates: start: 2009
  12. ABILIFY [Concomitant]
     Active Substance: ARIPIPRAZOLE
     Dosage: UNKNOWN
  13. INSULIN GLARGINE [Suspect]
     Active Substance: INSULIN GLARGINE
     Dosage: 50 IU, BID
     Route: 058
  14. INSULIN GLARGINE [Suspect]
     Active Substance: INSULIN GLARGINE
     Dosage: 45 IU, BID
     Route: 058
  15. INSULIN GLARGINE [Suspect]
     Active Substance: INSULIN GLARGINE
     Dosage: 50 IU, BID
     Route: 058

REACTIONS (18)
  - Hypoacusis [Not Recovered/Not Resolved]
  - Toothache [Recovered/Resolved]
  - Thyroid disorder [Unknown]
  - Vomiting [Recovered/Resolved]
  - Dyspepsia [Unknown]
  - Unevaluable event [Unknown]
  - Retinopathy [Not Recovered/Not Resolved]
  - Goitre [Not Recovered/Not Resolved]
  - Glycosylated haemoglobin increased [Recovering/Resolving]
  - Eye haemorrhage [Unknown]
  - Hypoglycaemia [Recovered/Resolved]
  - Inappropriate schedule of product administration [Unknown]
  - Inability to afford medication [Unknown]
  - Myocardial infarction [Unknown]
  - Visual impairment [Not Recovered/Not Resolved]
  - Optic neuropathy [Not Recovered/Not Resolved]
  - Tooth infection [Unknown]
  - Blood glucose decreased [Unknown]

NARRATIVE: CASE EVENT DATE: 2009
